FAERS Safety Report 9153018 (Version 2)
Quarter: 2013Q2

REPORT INFORMATION
  Report Type: Report from Study
  Country: US (occurrence: US)
  Receive Date: 20130310
  Receipt Date: 20130502
  Transmission Date: 20140414
  Serious: Yes (Other)
  Sender: FDA-Public Use
  Company Number: US-TEVA-390064USA

PATIENT
  Age: 15 Year
  Sex: Female

DRUGS (1)
  1. CLARAVIS [Suspect]

REACTIONS (3)
  - Suicidal ideation [Recovering/Resolving]
  - Mood altered [Recovering/Resolving]
  - Depression [Recovering/Resolving]
